FAERS Safety Report 8422282-1 (Version None)
Quarter: 2012Q2

REPORT INFORMATION
  Report Type: 
  Country: None (occurrence: None)
  Receive Date: 20120608
  Receipt Date: 20120528
  Transmission Date: 20120825
  Serious: Yes (Other)
  Sender: FDA-Public Use
  Company Number: DE-TEVA-340526GER

PATIENT
  Age: 49 Year
  Sex: Male

DRUGS (5)
  1. CYCLOSPORINE [Suspect]
     Indication: IMMUNOSUPPRESSANT DRUG THERAPY
     Dosage: 325 MILLIGRAM;
     Route: 065
  2. DOXORUBICIN HCL [Suspect]
     Indication: PLASMABLASTIC LYMPHOMA
     Dosage: ON D1; CHOP-21 CHEMOTHERAPY
     Route: 065
  3. VINCRISTINE [Suspect]
     Indication: PLASMABLASTIC LYMPHOMA
     Dosage: (MAX 2MG) ON D1; CHOP-21 CHEMOTHERAPY
     Route: 065
  4. CYCLOPHOSPHAMIDE [Suspect]
     Indication: PLASMABLASTIC LYMPHOMA
     Dosage: ON D1; CHOP-21 CHEMOTHERAPY
     Route: 065
  5. PREDNISOLONE [Suspect]
     Indication: PLASMABLASTIC LYMPHOMA
     Dosage: 100MG, D1-5 OF 22D CYCLE; CHOP-21 CHEMOTHERAPY
     Route: 065

REACTIONS (4)
  - PLASMABLASTIC LYMPHOMA [None]
  - NEUTROPENIA [None]
  - INFECTION [None]
  - POST TRANSPLANT LYMPHOPROLIFERATIVE DISORDER [None]
